FAERS Safety Report 14563902 (Version 1)
Quarter: 2018Q1

REPORT INFORMATION
  Report Type: Spontaneous
  Country: IE (occurrence: IE)
  Receive Date: 20180222
  Receipt Date: 20180222
  Transmission Date: 20180509
  Serious: Yes (Hospitalization, Disabling, Other)
  Sender: FDA-Public Use
  Company Number: IE-BAUSCH-BL-2018-004751

PATIENT
  Age: 82 Year
  Sex: Male

DRUGS (2)
  1. MAXITROL [Concomitant]
     Active Substance: DEXAMETHASONE\NEOMYCIN SULFATE\POLYMYXIN B SULFATE
     Indication: CATARACT OPERATION
     Dosage: LEFT EYE, 0.1 PERCENT W/V, 6000 IU/ML, 3500 IU/ML EYE
     Route: 047
  2. YELLOX [Suspect]
     Active Substance: BROMFENAC SODIUM
     Indication: CATARACT OPERATION
     Route: 047

REACTIONS (4)
  - Corneal transplant [Recovering/Resolving]
  - Ulcerative keratitis [Recovering/Resolving]
  - Corneal perforation [Recovering/Resolving]
  - Corneal operation [Recovering/Resolving]
